FAERS Safety Report 6971926-X (Version None)
Quarter: 2010Q3

REPORT INFORMATION
  Report Type: 
  Country: None (occurrence: None)
  Receive Date: 20100908
  Receipt Date: 20100908
  Transmission Date: 20110219
  Serious: Yes (Disabling)
  Sender: FDA-Public Use
  Company Number: None

PATIENT
  Sex: Female
  Weight: 58.0604 kg

DRUGS (2)
  1. VANCOMYCIN [Suspect]
     Indication: OSTEOMYELITIS
     Dosage: EVERY 8 HOURS IV
     Route: 042
     Dates: start: 19980415, end: 19980615
  2. VANCOMYCIN [Suspect]
     Indication: STAPHYLOCOCCAL INFECTION
     Dosage: EVERY 8 HOURS IV
     Route: 042
     Dates: start: 19980415, end: 19980615

REACTIONS (1)
  - DEAFNESS [None]
